FAERS Safety Report 7254442-X (Version None)
Quarter: 2011Q1

REPORT INFORMATION
  Report Type: 
  Country: None (occurrence: None)
  Receive Date: 20110129
  Receipt Date: 20100423
  Transmission Date: 20110831
  Serious: No
  Sender: FDA-Public Use
  Company Number: US-ABBOTT-10P-163-0640524-00

PATIENT
  Sex: Male
  Weight: 93.07 kg

DRUGS (4)
  1. HUMIRA [Suspect]
  2. PAROXETINE HCL [Concomitant]
     Dates: start: 20100416
  3. HUMIRA [Suspect]
     Indication: CROHN'S DISEASE
     Dates: start: 20100316
  4. HUMIRA [Suspect]

REACTIONS (6)
  - PYREXIA [None]
  - NAUSEA [None]
  - CHILLS [None]
  - HYPERHIDROSIS [None]
  - VOMITING [None]
  - TREMOR [None]
